FAERS Safety Report 22206344 (Version 1)
Quarter: 2023Q2

REPORT INFORMATION
  Report Type: Spontaneous
  Country: US (occurrence: US)
  Receive Date: 20230413
  Receipt Date: 20230413
  Transmission Date: 20230722
  Serious: No
  Sender: FDA-Public Use
  Company Number: US-drreddys-SPO/USA/23/0162489

PATIENT
  Age: 17 Year

DRUGS (3)
  1. ZENATANE [Suspect]
     Active Substance: ISOTRETINOIN
     Indication: Product used for unknown indication
     Dosage: RMA ISSUE DATE: 29 SEPTEMBER 2022 05:42:06 PM, 27 OCTOBER 2022 01:15:33 PM, 22 NOVEMBER 2022 07:32:2
  2. ZENATANE [Suspect]
     Active Substance: ISOTRETINOIN
     Dosage: RMA ISSUE DATE: 29 SEPTEMBER 2022 05:42:06 PM, 27 OCTOBER 2022 01:15:33 PM, 22 NOVEMBER 2022 07:32:2
  3. ZENATANE [Suspect]
     Active Substance: ISOTRETINOIN
     Dosage: RMA ISSUE DATE: 25 JANUARY 2023 12:15:45 PM

REACTIONS (1)
  - Myalgia [Unknown]
